FAERS Safety Report 25835816 (Version 1)
Quarter: 2025Q3

REPORT INFORMATION
  Report Type: Report from Study
  Country: CN (occurrence: CN)
  Receive Date: 20250923
  Receipt Date: 20250923
  Transmission Date: 20251021
  Serious: Yes (Other)
  Sender: ROCHE
  Company Number: CN-ROCHE-10000390075

PATIENT

DRUGS (4)
  1. BEVACIZUMAB [Suspect]
     Active Substance: BEVACIZUMAB
     Indication: Non-small cell lung cancer
     Dosage: ON DAY 1
     Route: 042
  2. PEMETREXED [Suspect]
     Active Substance: PEMETREXED
     Indication: Non-small cell lung cancer
     Dosage: ON DAY 2
     Route: 042
  3. CISPLATIN [Suspect]
     Active Substance: CISPLATIN
     Indication: Non-small cell lung cancer
     Dosage: ON DAY 2
     Route: 042
  4. CARBOPLATIN [Suspect]
     Active Substance: CARBOPLATIN
     Indication: Non-small cell lung cancer
     Dosage: DAY 2
     Route: 042

REACTIONS (13)
  - Drug-induced liver injury [Unknown]
  - Blood creatinine increased [Unknown]
  - Vomiting [Unknown]
  - Asthenia [Unknown]
  - Anaemia [Unknown]
  - Thyroid disorder [Unknown]
  - Nausea [Unknown]
  - Haemoptysis [Unknown]
  - Proteinuria [Unknown]
  - Blood pressure increased [Unknown]
  - Rash [Unknown]
  - Platelet count decreased [Unknown]
  - Neutrophil count decreased [Unknown]
